FAERS Safety Report 8859556 (Version 2)
Quarter: 2013Q3

REPORT INFORMATION
  Report Type: Spontaneous
  Country: FR (occurrence: None)
  Receive Date: 20121022
  Receipt Date: 20130809
  Transmission Date: 20140515
  Serious: Yes (Other)
  Sender: FDA-Public Use
  Company Number: DSA_60185_2012

PATIENT
  Age: 37 Year
  Sex: Male

DRUGS (1)
  1. FLAGYL [Suspect]
     Indication: COLITIS
     Route: 048
     Dates: start: 20120702, end: 20120704

REACTIONS (5)
  - Alcohol poisoning [None]
  - Dizziness [None]
  - Ataxia [None]
  - Gait disturbance [None]
  - Paraesthesia [None]
